FAERS Safety Report 4263386-7 (Version None)
Quarter: 2004Q1

REPORT INFORMATION
  Report Type: 
  Country: None (occurrence: None)
  Receive Date: 20040105
  Receipt Date: 20031223
  Transmission Date: 20041129
  Serious: Yes (Life-Threatening)
  Sender: FDA-Public Use
  Company Number: US-ROCHE-354719

PATIENT
  Age: 46 Year
  Sex: Male
  Weight: 77.1 kg

DRUGS (3)
  1. PEG-INTERFERON ALFA 2A (RO 25-8310) [Suspect]
     Dosage: TAKEN WEEKLY. STRENGTH REPORTED AS 180MCG/0.5ML.
     Route: 058
     Dates: start: 20030908
  2. RIBAVIRIN [Suspect]
     Route: 048
     Dates: start: 20030908
  3. PAXIL [Concomitant]
     Dosage: UNKNOWN DATE: INCREASED TO 40 MG DAILY
     Dates: start: 20030315

REACTIONS (2)
  - ANGER [None]
  - HOMICIDAL IDEATION [None]
